FAERS Safety Report 18579750 (Version 2)
Quarter: 2020Q4

REPORT INFORMATION
  Report Type: Spontaneous
  Country: DE (occurrence: DE)
  Receive Date: 20201204
  Receipt Date: 20201210
  Transmission Date: 20210114
  Serious: Yes (Other)
  Sender: FDA-Public Use
  Company Number: DE-TEVA-2020-DE-1854564

PATIENT
  Age: 71 Year
  Sex: Female
  Weight: 56 kg

DRUGS (1)
  1. PRIMIDON 250MG [Suspect]
     Active Substance: PRIMIDONE
     Indication: TREMOR
     Dosage: 1/2 TABLET = 125 MG (CREEPING IN)
     Route: 048
     Dates: start: 20201019, end: 20201019

REACTIONS (7)
  - Vomiting [Recovering/Resolving]
  - Diarrhoea [Recovering/Resolving]
  - Balance disorder [Not Recovered/Not Resolved]
  - Swollen tongue [Recovering/Resolving]
  - Dry mouth [Recovering/Resolving]
  - Dysarthria [Recovering/Resolving]
  - Nausea [Recovering/Resolving]

NARRATIVE: CASE EVENT DATE: 20201019
